FAERS Safety Report 5902198-2 (Version None)
Quarter: 2008Q3

REPORT INFORMATION
  Report Type: 
  Country: None (occurrence: None)
  Receive Date: 20080919
  Receipt Date: 20080730
  Transmission Date: 20090109
  Serious: No
  Sender: FDA-Public Use
  Company Number: US-WYE-H05331008

PATIENT
  Age: 48 Year
  Sex: Female

DRUGS (5)
  1. PRISTIQ [Suspect]
     Indication: DEPRESSION
     Dosage: 100 MG 1X PER 1 DAY, ORAL ; 50 MG 1X PER 1 DAY, ORAL
     Route: 048
     Dates: start: 20080619, end: 20080101
  2. PRISTIQ [Suspect]
     Indication: DEPRESSION
     Dosage: 100 MG 1X PER 1 DAY, ORAL ; 50 MG 1X PER 1 DAY, ORAL
     Route: 048
     Dates: start: 20080101
  3. PRISTIQ [Suspect]
  4. KLONOPIN [Concomitant]
  5. AMBIEN [Concomitant]

REACTIONS (1)
  - ALOPECIA [None]
